FAERS Safety Report 9146258 (Version 1)
Quarter: 2013Q1

REPORT INFORMATION
  Report Type: Spontaneous
  Country: AU (occurrence: AU)
  Receive Date: 20130307
  Receipt Date: 20130307
  Transmission Date: 20140127
  Serious: Yes (Other)
  Sender: FDA-Public Use
  Company Number: PHHY2013AU020192

PATIENT
  Age: 76 Year
  Sex: Male

DRUGS (1)
  1. AMIODARONE [Suspect]
     Indication: HEART RATE IRREGULAR
     Route: 048

REACTIONS (3)
  - Swollen tongue [Unknown]
  - Feeling hot [Unknown]
  - Rash [Unknown]
